FAERS Safety Report 5317720-7 (Version None)
Quarter: 2007Q2

REPORT INFORMATION
  Report Type: 
  Country: None (occurrence: None)
  Receive Date: 20070507
  Receipt Date: 20070427
  Transmission Date: 20071010
  Serious: Yes (Hospitalization)
  Sender: FDA-Public Use
  Company Number: JP-AVENTIS-200713743GDDC

PATIENT
  Age: 36 Year
  Sex: Male

DRUGS (6)
  1. MEQUITAZINE [Suspect]
     Dates: start: 20061201
  2. FEXOFENADINE HYDROCHLORIDE [Suspect]
     Indication: URTICARIA
     Route: 048
     Dates: start: 20061201, end: 20070201
  3. FLUVOXAMINE MALEATE [Concomitant]
     Dosage: DOSE: UNK
     Dates: start: 19890101
  4. NITRAZEPAM [Concomitant]
     Dosage: DOSE: UNK
     Dates: start: 19890101
  5. CHLORPROMAZINE HCL [Concomitant]
     Dosage: DOSE: UNK
     Dates: start: 19890101
  6. SENNA LEAF/SENNA POD [Concomitant]
     Dosage: DOSE: UNK

REACTIONS (2)
  - JAUNDICE [None]
  - LIVER DISORDER [None]
